FAERS Safety Report 10590500 (Version 3)
Quarter: 2014Q4

REPORT INFORMATION
  Report Type: Spontaneous
  Country: JP (occurrence: JP)
  Receive Date: 20141118
  Receipt Date: 20141219
  Transmission Date: 20150529
  Serious: Yes (Hospitalization, Other)
  Sender: FDA-Public Use
  Company Number: JP-CELGENE-JPN-2014110999

PATIENT
  Age: 68 Year
  Sex: Male

DRUGS (5)
  1. REVLIMID [Suspect]
     Active Substance: LENALIDOMIDE
     Indication: MYELODYSPLASTIC SYNDROME
     Route: 048
     Dates: start: 20140409, end: 20140429
  2. CICLOSPORIN [Concomitant]
     Active Substance: CYCLOSPORINE
     Indication: ORGANISING PNEUMONIA
     Route: 065
     Dates: start: 20140822
  3. VIDAZA [Suspect]
     Active Substance: AZACITIDINE
     Route: 041
     Dates: start: 20140825, end: 20141024
  4. REVLIMID [Suspect]
     Active Substance: LENALIDOMIDE
     Route: 048
     Dates: start: 20140514, end: 20140603
  5. VIDAZA [Suspect]
     Active Substance: AZACITIDINE
     Indication: MYELODYSPLASTIC SYNDROME
     Route: 041
     Dates: start: 20140224, end: 20140228

REACTIONS (10)
  - Pneumonia aspiration [Unknown]
  - Serratia infection [Recovered/Resolved]
  - Lung infiltration [Recovering/Resolving]
  - Acute febrile neutrophilic dermatosis [Unknown]
  - Pyrexia [Recovered/Resolved]
  - Organising pneumonia [Recovering/Resolving]
  - Pyrexia [Recovered/Resolved]
  - Pyrexia [Recovered/Resolved]
  - Lung infiltration [Recovering/Resolving]
  - Hyperthermia [Recovering/Resolving]

NARRATIVE: CASE EVENT DATE: 2014
